FAERS Safety Report 10918387 (Version 1)
Quarter: 2015Q1

REPORT INFORMATION
  Report Type: Spontaneous
  Country: CN (occurrence: CN)
  Receive Date: 20150316
  Receipt Date: 20150316
  Transmission Date: 20150721
  Serious: Yes (Other)
  Sender: FDA-Public Use
  Company Number: CN-ASTRAZENECA-2015SE23689

PATIENT
  Age: 23423 Day
  Sex: Female

DRUGS (5)
  1. XIAOAIPING ZHUSHEYE [Concomitant]
     Indication: NEOPLASM
     Route: 041
     Dates: start: 20140905, end: 20140913
  2. ANASTROZOLE. [Suspect]
     Active Substance: ANASTROZOLE
     Indication: BREAST CANCER FEMALE
     Route: 048
     Dates: start: 20140530, end: 20140928
  3. SHUGANNING ZHUSHEYE [Concomitant]
     Indication: LIVER DISORDER
     Route: 041
     Dates: start: 20140905, end: 20140922
  4. SHUGANNING ZHUSHEYE [Concomitant]
     Indication: ENZYME LEVEL INCREASED
     Route: 041
     Dates: start: 20140905, end: 20140922
  5. ANASTROZOLE. [Suspect]
     Active Substance: ANASTROZOLE
     Indication: HORMONE SUPPRESSION THERAPY
     Route: 048
     Dates: start: 20140530, end: 20140928

REACTIONS (2)
  - Endometrial hyperplasia [Not Recovered/Not Resolved]
  - Uterine leiomyoma [Unknown]

NARRATIVE: CASE EVENT DATE: 20140907
